FAERS Safety Report 8258057-6 (Version None)
Quarter: 2012Q2

REPORT INFORMATION
  Report Type: 
  Country: None (occurrence: None)
  Receive Date: 20120404
  Receipt Date: 20120327
  Transmission Date: 20120825
  Serious: Yes (Hospitalization)
  Sender: FDA-Public Use
  Company Number: US-BAYER-2011-064208

PATIENT
  Age: 47 Year
  Sex: Female
  Weight: 63.492 kg

DRUGS (3)
  1. DROSPIRENONE AND ETHINYL ESTRADIOL [Suspect]
     Dosage: UNK
     Dates: start: 20080814, end: 20081015
  2. YASMIN [Suspect]
     Dosage: UNK
     Dates: start: 20040227, end: 20080813
  3. YASMIN [Suspect]
     Dosage: UNK
     Dates: start: 20081001, end: 20090728

REACTIONS (10)
  - ANXIETY [None]
  - HYPERHIDROSIS [None]
  - AXILLARY VEIN THROMBOSIS [None]
  - EMOTIONAL DISTRESS [None]
  - PYREXIA [None]
  - NAUSEA [None]
  - FATIGUE [None]
  - HEADACHE [None]
  - JUGULAR VEIN THROMBOSIS [None]
  - CHEST PAIN [None]
